FAERS Safety Report 10648085 (Version 2)
Quarter: 2015Q2

REPORT INFORMATION
  Report Type: Spontaneous
  Country: US (occurrence: None)
  Receive Date: 20141210
  Receipt Date: 20150625
  Transmission Date: 20150821
  Serious: Yes (Hospitalization, Other)
  Sender: FDA-Public Use
  Company Number: RAP-0268-2014

PATIENT
  Age: 24 Year
  Sex: Male

DRUGS (8)
  1. PROCYSBI DELAYED-RELEASE [Suspect]
     Active Substance: CYSTEAMINE BITARTRATE
     Indication: CYSTINOSIS
     Dosage: 1350 MG (675 MG, 1 IN 12 HR), ORAL
     Route: 048
     Dates: start: 201405, end: 20141117
  2. CYSTERAN (CYSTEAMINE) [Concomitant]
  3. RENAGEL (SEVELAMER) [Concomitant]
  4. MYFORTIC (MYCOPHENOLIC ACID) [Concomitant]
  5. NOVASC (AMLODIPINE) [Concomitant]
  6. PROGRAF [Concomitant]
     Active Substance: TACROLIMUS\TACROLIMUS ANHYDROUS
  7. PREDNISONE (PREDNISONE) [Concomitant]
     Active Substance: PREDNISONE
  8. LASIX [Concomitant]
     Active Substance: FUROSEMIDE

REACTIONS (6)
  - Renal transplant [None]
  - Kidney transplant rejection [None]
  - Renal failure [None]
  - Amino acid level abnormal [None]
  - Amino acid level increased [None]
  - Nephrolithiasis [None]

NARRATIVE: CASE EVENT DATE: 201405
